FAERS Safety Report 25262976 (Version 1)
Quarter: 2025Q2

REPORT INFORMATION
  Report Type: Spontaneous
  Country: US (occurrence: None)
  Receive Date: 20250501
  Receipt Date: 20250501
  Transmission Date: 20250717
  Serious: Yes (Hospitalization)
  Sender: FDA-CTU
  Company Number: None

PATIENT
  Age: 89 Year
  Sex: Male

DRUGS (4)
  1. DOXAZOSIN MESYLATE [Suspect]
     Active Substance: DOXAZOSIN MESYLATE
  2. AMLODIPINE [Suspect]
     Active Substance: AMLODIPINE BESYLATE
  3. METOPROLOL [Suspect]
     Active Substance: METOPROLOL
  4. BACLOFEN [Suspect]
     Active Substance: BACLOFEN

REACTIONS (4)
  - Orthostatic hypotension [None]
  - Syncope [None]
  - Fall [None]
  - Subarachnoid haemorrhage [None]

NARRATIVE: CASE EVENT DATE: 20250318
